FAERS Safety Report 10055161 (Version 2)
Quarter: 2014Q3

REPORT INFORMATION
  Report Type: Spontaneous
  Country: BE (occurrence: BE)
  Receive Date: 20140402
  Receipt Date: 20140708
  Transmission Date: 20150326
  Serious: Yes (Hospitalization)
  Sender: FDA-Public Use
  Company Number: PHHY2014BE039170

PATIENT
  Age: 65 Year
  Sex: Female

DRUGS (4)
  1. AFINITOR [Suspect]
     Active Substance: EVEROLIMUS
     Indication: BREAST NEOPLASM
     Dosage: 10 MG, DAILY
     Route: 048
  2. AROMASIN [Concomitant]
     Active Substance: EXEMESTANE
  3. CRESTOR [Concomitant]
     Active Substance: ROSUVASTATIN CALCIUM
  4. XGEVA [Concomitant]
     Active Substance: DENOSUMAB

REACTIONS (3)
  - Lung disorder [Recovered/Resolved]
  - Pleural effusion [Recovered/Resolved]
  - Dyspnoea [Recovered/Resolved]

NARRATIVE: CASE EVENT DATE: 20140218
